FAERS Safety Report 6557875-X (Version None)
Quarter: 2010Q1

REPORT INFORMATION
  Report Type: 
  Country: None (occurrence: None)
  Receive Date: 20100129
  Receipt Date: 20100120
  Transmission Date: 20100710
  Serious: Yes (Other)
  Sender: FDA-Public Use
  Company Number: NL-AMGEN-KDC386834

PATIENT
  Age: 64 Year
  Sex: Male
  Weight: 74.3 kg

DRUGS (9)
  1. ARANESP [Suspect]
     Indication: ANAEMIA OF MALIGNANT DISEASE
     Route: 058
     Dates: start: 20090508
  2. CODEINE PHOSPHATE AND ACETAMINOPHEN [Concomitant]
     Route: 048
  3. METOPROLOL [Concomitant]
     Route: 048
  4. RIVOTRIL [Concomitant]
     Route: 048
  5. PARACETAMOL [Concomitant]
     Route: 048
  6. TRAMADOL [Concomitant]
     Route: 048
  7. OMEPRAZOLE [Concomitant]
     Route: 048
  8. DEPAKENE [Concomitant]
     Route: 048
  9. UNSPECIFIED ANTINEOPLASTIC AGENT [Concomitant]
     Dates: start: 20090415

REACTIONS (1)
  - INTERMITTENT CLAUDICATION [None]
